FAERS Safety Report 5912482-4 (Version None)
Quarter: 2008Q4

REPORT INFORMATION
  Report Type: 
  Country: None (occurrence: None)
  Receive Date: 20081008
  Receipt Date: 20081002
  Transmission Date: 20090506
  Serious: Yes (Other)
  Sender: FDA-Public Use
  Company Number: GR-AMGEN-UK308872

PATIENT
  Sex: Female

DRUGS (5)
  1. VECTIBIX [Suspect]
     Indication: COLORECTAL CANCER
     Route: 042
     Dates: start: 20080703, end: 20080703
  2. VECTIBIX [Suspect]
     Route: 042
     Dates: start: 20080717, end: 20080717
  3. VECTIBIX [Suspect]
     Route: 042
     Dates: start: 20080805, end: 20080805
  4. VECTIBIX [Suspect]
     Route: 042
     Dates: start: 20080825, end: 20080825
  5. VECTIBIX [Suspect]
     Route: 042
     Dates: start: 20080925

REACTIONS (2)
  - HAEMATURIA [None]
  - HAEMOPTYSIS [None]
